FAERS Safety Report 5371917-9 (Version None)
Quarter: 2007Q2

REPORT INFORMATION
  Report Type: 
  Country: None (occurrence: None)
  Receive Date: 20070627
  Receipt Date: 20070620
  Transmission Date: 20071010
  Serious: Yes (Other)
  Sender: FDA-Public Use
  Company Number: CN-ABBOTT-07P-035-0372145-00

PATIENT
  Age: 39 Year
  Sex: Female

DRUGS (2)
  1. DEPAKENE [Suspect]
     Indication: SURGERY
     Route: 048
     Dates: start: 20060403
  2. DEPAKENE [Suspect]
     Indication: EPILEPSY

REACTIONS (2)
  - CONVULSION [None]
  - DRUG INEFFECTIVE [None]
